FAERS Safety Report 4755873-X (Version None)
Quarter: 2005Q3

REPORT INFORMATION
  Report Type: 
  Country: None (occurrence: None)
  Receive Date: 20050830
  Receipt Date: 20050706
  Transmission Date: 20060218
  Serious: Yes (Other)
  Sender: FDA-Public Use
  Company Number: US-BRISTOL-MYERS SQUIBB COMPANY-13027370

PATIENT
  Age: 41 Year
  Sex: Male

DRUGS (5)
  1. ERBITUX [Suspect]
     Indication: COLORECTAL CANCER
     Dates: start: 20050621, end: 20050621
  2. IRINOTECAN [Concomitant]
     Indication: PREMEDICATION
     Dates: start: 20050621, end: 20050621
  3. DEXAMETHASONE [Concomitant]
     Indication: PREMEDICATION
     Dates: start: 20050621, end: 20050621
  4. ZOFRAN [Concomitant]
     Indication: PREMEDICATION
     Dates: start: 20050621, end: 20050621
  5. ATROPINE [Concomitant]
     Indication: PREMEDICATION
     Dates: start: 20050621, end: 20050621

REACTIONS (1)
  - DERMATITIS ACNEIFORM [None]
